FAERS Safety Report 16211331 (Version 1)
Quarter: 2019Q2

REPORT INFORMATION
  Report Type: Spontaneous
  Country: US (occurrence: US)
  Receive Date: 20190314
  Receipt Date: 20190314
  Transmission Date: 20190711
  Serious: Yes (Hospitalization, Disabling)
  Sender: FDA-Public Use
  Company Number: None

PATIENT
  Age: 59 Year
  Sex: Male

DRUGS (11)
  1. MYCOPHENOLATE 500 MG TAB [Suspect]
     Active Substance: MYCOPHENOLIC ACID
     Indication: PRODUCT USED FOR UNKNOWN INDICATION
     Dosage: ?          OTHER DOSE:2 TABS ;?
     Route: 048
     Dates: start: 20190118
  2. VORICONAZOLE. [Concomitant]
     Active Substance: VORICONAZOLE
  3. METOCLOPRAMIDE. [Concomitant]
     Active Substance: METOCLOPRAMIDE
  4. METOPROLOL. [Concomitant]
     Active Substance: METOPROLOL
  5. VALGANCICLOVIR. [Concomitant]
     Active Substance: VALGANCICLOVIR
  6. PRALUENT [Concomitant]
     Active Substance: ALIROCUMAB
  7. ASPIRIN. [Concomitant]
     Active Substance: ASPIRIN
  8. TACROLIMUS 0.5 MG CAPSULES [Suspect]
     Active Substance: TACROLIMUS
     Indication: PRODUCT USED FOR UNKNOWN INDICATION
     Dosage: ?          OTHER DOSE:1 CAPSULE;?
     Route: 048
     Dates: start: 20190118
  9. PREDNISONE. [Concomitant]
     Active Substance: PREDNISONE
  10. SMZ/TMP [Concomitant]
     Active Substance: SULFAMETHOXAZOLE\TRIMETHOPRIM
  11. OMEPRAZOLE. [Concomitant]
     Active Substance: OMEPRAZOLE

REACTIONS (1)
  - Hospitalisation [None]
